FAERS Safety Report 5883376-8 (Version None)
Quarter: 2008Q3

REPORT INFORMATION
  Report Type: 
  Country: None (occurrence: None)
  Receive Date: 20080910
  Receipt Date: 20080826
  Transmission Date: 20090109
  Serious: Yes (Other)
  Sender: FDA-Public Use
  Company Number: JPI-P-004372

PATIENT
  Age: 78 Year
  Sex: Male

DRUGS (7)
  1. LUVOX [Suspect]
     Indication: DEPRESSION
     Dosage: 50 MG (50 MG, 1 IN 1 D) , ORAL; 75 MG (75 MG, 1 IN 1 D) , ORAL; 25 MG (25 MG, 1 IN 1 D) , ORAL
     Route: 048
     Dates: start: 20051207, end: 20060103
  2. LUVOX [Suspect]
     Indication: DEPRESSION
     Dosage: 50 MG (50 MG, 1 IN 1 D) , ORAL; 75 MG (75 MG, 1 IN 1 D) , ORAL; 25 MG (25 MG, 1 IN 1 D) , ORAL
     Route: 048
     Dates: start: 20060104, end: 20060117
  3. LUVOX [Suspect]
     Indication: DEPRESSION
     Dosage: 50 MG (50 MG, 1 IN 1 D) , ORAL; 75 MG (75 MG, 1 IN 1 D) , ORAL; 25 MG (25 MG, 1 IN 1 D) , ORAL
     Route: 048
     Dates: start: 20060118, end: 20060207
  4. LUVOX [Suspect]
     Indication: DEPRESSION
     Dosage: 50 MG (50 MG, 1 IN 1 D) , ORAL; 75 MG (75 MG, 1 IN 1 D) , ORAL; 25 MG (25 MG, 1 IN 1 D) , ORAL
     Route: 048
     Dates: start: 20060208, end: 20060301
  5. QUETIAPINE FUMARATE [Suspect]
     Indication: DELUSION
     Dosage: SEE IMAGE
     Route: 048
     Dates: start: 20050325, end: 20060312
  6. QUETIAPINE FUMARATE [Suspect]
     Indication: DELUSION
     Dosage: SEE IMAGE
     Route: 048
     Dates: start: 20060313
  7. SULPIRIDE (SULPIRIDE) [Concomitant]

REACTIONS (9)
  - AGITATION [None]
  - APATHY [None]
  - COGNITIVE DISORDER [None]
  - COMPULSIVE SEXUAL BEHAVIOUR [None]
  - DRUG INTERACTION [None]
  - LACUNAR INFARCTION [None]
  - LIBIDO INCREASED [None]
  - PSYCHOMOTOR HYPERACTIVITY [None]
  - VASCULAR DEMENTIA [None]
